FAERS Safety Report 23812792 (Version 6)
Quarter: 2024Q2

REPORT INFORMATION
  Report Type: Spontaneous
  Country: JP (occurrence: JP)
  Receive Date: 20240503
  Receipt Date: 20240606
  Transmission Date: 20240716
  Serious: Yes (Other)
  Sender: FDA-Public Use
  Company Number: JP-BRISTOL-MYERS SQUIBB COMPANY-2024-065648

PATIENT
  Age: 32 Year
  Sex: Female

DRUGS (5)
  1. REVLIMID [Suspect]
     Active Substance: LENALIDOMIDE
     Indication: Product used for unknown indication
     Dosage: DOSE UNSPECIFIED
     Route: 050
     Dates: start: 20171128, end: 20201217
  2. REVLIMID [Suspect]
     Active Substance: LENALIDOMIDE
     Dosage: 28 DAY CYCLES
     Route: 050
     Dates: start: 20201217, end: 20230816
  3. REVLIMID [Suspect]
     Active Substance: LENALIDOMIDE
     Dosage: 3  WEEKS  ON  AND  5 WEEKS OFF
     Route: 050
     Dates: start: 20240105, end: 20240125
  4. REVLIMID [Suspect]
     Active Substance: LENALIDOMIDE
     Dosage: 28 DAY CYCLES
     Route: 050
     Dates: start: 20240301, end: 20240321
  5. REVLIMID [Suspect]
     Active Substance: LENALIDOMIDE
     Dosage: 5 MG ONCE A DAY ? 2 CAPSULES
     Route: 050
     Dates: start: 20240426

REACTIONS (2)
  - Exposure via body fluid [Unknown]
  - Abortion spontaneous [Unknown]

NARRATIVE: CASE EVENT DATE: 20240517
